FAERS Safety Report 22190886 (Version 1)
Quarter: 2023Q2

REPORT INFORMATION
  Report Type: Spontaneous
  Country: DE (occurrence: DE)
  Receive Date: 20230410
  Receipt Date: 20230410
  Transmission Date: 20230721
  Serious: Yes (Life-Threatening, Hospitalization)
  Sender: FDA-Public Use
  Company Number: DE-STADA-211504

PATIENT
  Age: 51 Year
  Sex: Male

DRUGS (3)
  1. FINGOLIMOD [Suspect]
     Active Substance: FINGOLIMOD
     Indication: Relapsing-remitting multiple sclerosis
     Dates: start: 2017
  2. METHYLPREDNISOLONE [Suspect]
     Active Substance: METHYLPREDNISOLONE
     Indication: Multiple sclerosis relapse
     Dosage: ADMINISTERED FOR FIVE CONSECUTIVE DAYS
  3. NATALIZUMAB [Suspect]
     Active Substance: NATALIZUMAB
     Indication: Multiple sclerosis relapse
     Dates: start: 2012, end: 2017

REACTIONS (9)
  - Progressive multifocal leukoencephalopathy [Unknown]
  - Quadriplegia [Not Recovered/Not Resolved]
  - Gaze palsy [Unknown]
  - Respiratory failure [Unknown]
  - Tumefactive multiple sclerosis [Unknown]
  - Human herpesvirus 6 infection [Unknown]
  - Pneumonia aspiration [Unknown]
  - Mutism [Unknown]
  - JC virus infection [Recovered/Resolved]
